FAERS Safety Report 15494142 (Version 8)
Quarter: 2018Q4

REPORT INFORMATION
  Report Type: Report from Study
  Country: ES (occurrence: ES)
  Receive Date: 20181012
  Receipt Date: 20181220
  Transmission Date: 20190205
  Serious: Yes (Hospitalization)
  Sender: FDA-Public Use
  Company Number: ES-REGENERON PHARMACEUTICALS, INC.-2018-37176

PATIENT

DRUGS (6)
  1. PENTAMIDINE [Concomitant]
     Active Substance: PENTAMIDINE
     Indication: INFECTION PROPHYLAXIS
     Dosage: 300 MG, Q4WK
     Route: 055
     Dates: end: 20181015
  2. REGN1979 [Suspect]
     Active Substance: INVESTIGATIONAL PRODUCT
     Indication: NON-HODGKIN^S LYMPHOMA
     Dosage: 1000 ?G, WEEKLY, DL9, DOSE ESCALATION
     Route: 042
     Dates: start: 20180906, end: 20180914
  3. CEMIPLIMAB [Suspect]
     Active Substance: CEMIPLIMAB
     Indication: NON-HODGKIN^S LYMPHOMA
     Dosage: 3 MG/KG, Q2WKS
     Route: 042
     Dates: start: 20180906, end: 20180906
  4. CEMIPLIMAB [Suspect]
     Active Substance: CEMIPLIMAB
     Dosage: 3 MG/KG, Q2WKS
     Route: 042
     Dates: start: 20180926
  5. REGN1979 [Suspect]
     Active Substance: INVESTIGATIONAL PRODUCT
     Dosage: 8000 ?G, WEEKLY, DL9, DOSE ESCALATION
     Route: 042
     Dates: start: 20180926
  6. ALLOPURINOL. [Concomitant]
     Active Substance: ALLOPURINOL
     Indication: PROPHYLAXIS
     Dosage: 300 MG, QD
     Route: 048

REACTIONS (8)
  - Neutropenia [Recovered/Resolved]
  - Cytokine release syndrome [Recovered/Resolved]
  - Neutropenia [Recovered/Resolved]
  - Neutropenia [Recovered/Resolved]
  - Neutropenia [Recovered/Resolved]
  - Neutropenia [Recovered/Resolved]
  - Cytokine release syndrome [Recovered/Resolved]
  - Neutropenia [Recovered/Resolved]

NARRATIVE: CASE EVENT DATE: 20180910
